FAERS Safety Report 6170627-8 (Version None)
Quarter: 2009Q2

REPORT INFORMATION
  Report Type: 
  Country: None (occurrence: None)
  Receive Date: 20090428
  Receipt Date: 20090423
  Transmission Date: 20091009
  Serious: Yes (Death)
  Sender: FDA-Public Use
  Company Number: CA-JNJFOC-20090405477

PATIENT
  Age: 83 Year
  Sex: Female

DRUGS (18)
  1. IBUPROFEN [Suspect]
     Indication: DRUG USE FOR UNKNOWN INDICATION
  2. ASPIRIN [Suspect]
     Indication: DRUG USE FOR UNKNOWN INDICATION
  3. TYLENOL W/ CODEINE [Suspect]
     Indication: DRUG USE FOR UNKNOWN INDICATION
  4. BETASERON [Suspect]
     Indication: DRUG USE FOR UNKNOWN INDICATION
     Dosage: THERAPY DURATION 3 YEARS
     Route: 058
  5. GLYCERIN [Suspect]
     Indication: DRUG USE FOR UNKNOWN INDICATION
  6. HYDROCHLOROTHIAZIDE [Suspect]
     Indication: DRUG USE FOR UNKNOWN INDICATION
  7. LACTULOSE [Suspect]
     Indication: DRUG USE FOR UNKNOWN INDICATION
  8. LIPITOR [Suspect]
     Indication: DRUG USE FOR UNKNOWN INDICATION
  9. METOPROLOL [Suspect]
     Indication: DRUG USE FOR UNKNOWN INDICATION
  10. PLAVIX [Suspect]
     Indication: DRUG USE FOR UNKNOWN INDICATION
  11. QUININE [Suspect]
     Indication: DRUG USE FOR UNKNOWN INDICATION
  12. RAMIPRIL [Suspect]
     Indication: DRUG USE FOR UNKNOWN INDICATION
  13. SERTRALINE HCL [Suspect]
     Indication: DRUG USE FOR UNKNOWN INDICATION
  14. TEMAZEPAM [Suspect]
     Indication: DRUG USE FOR UNKNOWN INDICATION
  15. TERAZOSIN HCL [Suspect]
     Indication: DRUG USE FOR UNKNOWN INDICATION
  16. ALLOPURINOL [Suspect]
     Indication: DRUG USE FOR UNKNOWN INDICATION
  17. NIFEDIPINE [Suspect]
     Indication: DRUG USE FOR UNKNOWN INDICATION
  18. ROBAXACET [Suspect]
     Indication: DRUG USE FOR UNKNOWN INDICATION

REACTIONS (6)
  - ABDOMINAL PAIN [None]
  - BACK PAIN [None]
  - JAUNDICE [None]
  - MALAISE [None]
  - MUSCULOSKELETAL STIFFNESS [None]
  - PANCREATIC CARCINOMA [None]
